FAERS Safety Report 6143786-0 (Version None)
Quarter: 2009Q2

REPORT INFORMATION
  Report Type: 
  Country: None (occurrence: None)
  Receive Date: 20090403
  Receipt Date: 20090326
  Transmission Date: 20091009
  Serious: Yes (Other)
  Sender: FDA-Public Use
  Company Number: PHHY2009JP12009

PATIENT
  Sex: Male
  Weight: 45 kg

DRUGS (8)
  1. ICL670A ICL+DISTAB [Suspect]
     Indication: IRON OVERLOAD
     Dosage: 500 MG, QD
     Route: 048
     Dates: start: 20080919
  2. ICL670A ICL+DISTAB [Suspect]
     Indication: APLASTIC ANAEMIA
  3. NEORAL [Suspect]
     Dosage: UNK
  4. PRIMOBOLAN [Concomitant]
     Dosage: 20 MG/DAY
     Route: 048
     Dates: start: 20070706, end: 20090319
  5. LANSOPRAZOLE [Concomitant]
     Dosage: 15 MG/DAY
     Route: 048
     Dates: start: 20070928, end: 20090319
  6. MUCOSTA [Concomitant]
     Dosage: 300 MG/DAY
     Route: 048
     Dates: start: 20070928, end: 20090319
  7. RED BLOOD CELLS [Concomitant]
     Dosage: 2 UNITS EVERY TWO WEEKS
     Dates: start: 20081003, end: 20090120
  8. RED BLOOD CELLS [Concomitant]
     Dosage: 2UNITS EVERY WEEK
     Dates: start: 20090127, end: 20090319

REACTIONS (3)
  - ANAEMIA [None]
  - BLOOD CREATININE INCREASED [None]
  - EPISTAXIS [None]
